FAERS Safety Report 8184835-8 (Version None)
Quarter: 2012Q1

REPORT INFORMATION
  Report Type: 
  Country: None (occurrence: None)
  Receive Date: 20120305
  Receipt Date: 20120227
  Transmission Date: 20120608
  Serious: Yes (Other)
  Sender: FDA-Public Use
  Company Number: FR-BAXTER-2011BH040553

PATIENT
  Age: 51 Year
  Sex: Male

DRUGS (13)
  1. ADVATE [Suspect]
     Route: 042
     Dates: start: 20111201
  2. RED BLOOD CELLS [Concomitant]
     Indication: HAEMOGLOBIN DECREASED
     Route: 065
     Dates: start: 20111212
  3. TENOFOVIR DISOPROXIL FUMARATE [Concomitant]
     Indication: PRODUCT USED FOR UNKNOWN INDICATION
     Route: 065
  4. IMMUNE GLOBULIN NOS [Concomitant]
     Indication: PRODUCT USED FOR UNKNOWN INDICATION
     Route: 065
  5. NORVIR [Concomitant]
     Indication: PRODUCT USED FOR UNKNOWN INDICATION
     Route: 065
  6. ATAZANAVIR [Concomitant]
     Indication: PRODUCT USED FOR UNKNOWN INDICATION
     Route: 065
  7. ADVATE [Suspect]
     Indication: FACTOR VIII DEFICIENCY
     Route: 042
     Dates: start: 20111212
  8. ADVATE [Suspect]
     Route: 042
     Dates: start: 20111201
  9. PREDNISONE TAB [Concomitant]
     Indication: PRODUCT USED FOR UNKNOWN INDICATION
     Route: 065
  10. ADVATE [Suspect]
     Route: 042
     Dates: start: 20111201
  11. ADVATE [Suspect]
     Route: 042
     Dates: start: 20111217
  12. ADVATE [Suspect]
     Route: 042
     Dates: start: 20111217
  13. VITAMIN D [Concomitant]
     Indication: PRODUCT USED FOR UNKNOWN INDICATION
     Route: 065

REACTIONS (1)
  - INCORRECT DOSE ADMINISTERED [None]
